FAERS Safety Report 8867427 (Version 1)
Quarter: 2012Q4

REPORT INFORMATION
  Report Type: 
  Country: US (occurrence: US)
  Receive Date: 20121025
  Receipt Date: 20121025
  Transmission Date: 20130627
  Serious: No
  Sender: FDA-Public Use
  Company Number: US-AMGEN-USASP2012016492

PATIENT
  Sex: Female
  Weight: 55.33 kg

DRUGS (16)
  1. ENBREL [Suspect]
     Indication: PRODUCT USED FOR UNKNOWN INDICATION
     Dosage: 50 mg, qwk
     Route: 058
  2. PREMARIN [Concomitant]
     Dosage: 0.3 mg, UNK
  3. AMITRIPTYLIN [Concomitant]
     Dosage: 100 mg, UNK
  4. PREDNISONE [Concomitant]
     Dosage: 1 mg, UNK
  5. METHOTREXATE [Concomitant]
     Dosage: 2.5 mg, UNK
  6. LODINE [Concomitant]
     Dosage: 400 mg, UNK
  7. MULTIVITAMIN                       /00097801/ [Concomitant]
  8. VITAMIN D /00107901/ [Concomitant]
     Dosage: 2000 IU, UNK
  9. VITAMIN C                          /00008001/ [Concomitant]
     Dosage: 500 mg, UNK
  10. VITAMIN E                          /00110501/ [Concomitant]
     Dosage: 1000 IU, UNK
  11. FOLIC ACID [Concomitant]
     Dosage: 1 mg, UNK
  12. CALCIUM WITH VITAMIN D             /00944201/ [Concomitant]
  13. PRILOSEC                           /00661201/ [Concomitant]
     Dosage: 10 mg, UNK
  14. FISH OIL [Concomitant]
  15. GLUCOSAMINE [Concomitant]
     Dosage: 1000 mg, UNK
  16. ATELVIA [Concomitant]

REACTIONS (1)
  - Weight increased [Unknown]
